FAERS Safety Report 10432339 (Version 1)
Quarter: 2014Q3

REPORT INFORMATION
  Report Type: Spontaneous
  Country: US (occurrence: None)
  Receive Date: 20140904
  Receipt Date: 20140904
  Transmission Date: 20150326
  Serious: Yes (Life-Threatening, Hospitalization, Other)
  Sender: FDA-Public Use
  Company Number: None

PATIENT
  Age: 57 Year
  Sex: Male
  Weight: 104.33 kg

DRUGS (1)
  1. LISINOPRIL 20 MG [Suspect]
     Active Substance: LISINOPRIL
     Indication: HYPERTENSION
     Dosage: 1, TWICE DAILY, TAKEN BY MOUTH
     Route: 048

REACTIONS (6)
  - Asphyxia [None]
  - Swollen tongue [None]
  - Dyspnoea [None]
  - Dysphagia [None]
  - Depression [None]
  - Throat tightness [None]

NARRATIVE: CASE EVENT DATE: 20140414
